FAERS Safety Report 11977516 (Version 1)
Quarter: 2016Q1

REPORT INFORMATION
  Report Type: Spontaneous
  Country: US (occurrence: US)
  Receive Date: 20160129
  Receipt Date: 20160129
  Transmission Date: 20160526
  Serious: No
  Sender: FDA-Public Use
  Company Number: US-HQ SPECIALTY-US-2015INT000353

PATIENT

DRUGS (29)
  1. LORAZEPAM. [Concomitant]
     Active Substance: LORAZEPAM
     Indication: NAUSEA
     Route: 048
  2. ONDANSETRON HCL [Concomitant]
     Active Substance: ONDANSETRON HYDROCHLORIDE
     Dosage: AS NECESSARY
     Route: 048
  3. XANAX [Concomitant]
     Active Substance: ALPRAZOLAM
     Indication: ANXIETY
     Route: 048
  4. DILAUDID [Concomitant]
     Active Substance: HYDROMORPHONE HYDROCHLORIDE
     Dosage: TAKE 1 PO Q 3-4 H PRN PAIN
     Route: 048
  5. COLACE [Concomitant]
     Active Substance: DOCUSATE SODIUM
     Route: 048
  6. CISPLATIN. [Suspect]
     Active Substance: CISPLATIN
     Indication: ANAL CANCER STAGE IV
     Dosage: 4 CYCLES
     Dates: end: 20140630
  7. OXYCONTIN [Concomitant]
     Active Substance: OXYCODONE HYDROCHLORIDE
     Route: 048
  8. PROMETHAZINE HCL [Concomitant]
     Active Substance: PROMETHAZINE HYDROCHLORIDE
     Indication: NAUSEA
     Route: 054
  9. FLONASE [Concomitant]
     Active Substance: FLUTICASONE PROPIONATE
     Route: 045
  10. LEVAQUIN [Concomitant]
     Active Substance: LEVOFLOXACIN
     Indication: INFECTION
     Route: 048
  11. MECLIZINE HCL [Concomitant]
     Indication: NAUSEA
     Route: 048
  12. MECLIZINE HCL [Concomitant]
     Indication: DIZZINESS
     Route: 048
  13. DIFLUCAN [Concomitant]
     Active Substance: FLUCONAZOLE
     Indication: CANDIDA INFECTION
     Dosage: 100 MG; TAKE 2 TODAY AND ONE DAILY UNTIL HAS TAKEN ALL
     Route: 048
  14. CIV 5-FU [Suspect]
     Active Substance: FLUOROURACIL
     Indication: ANAL CANCER STAGE IV
     Dosage: 4 CYCLES
     Dates: end: 20140630
  15. CARBOPLATIN. [Suspect]
     Active Substance: CARBOPLATIN
     Indication: ANAL CANCER STAGE IV
     Dosage: DF
     Dates: start: 20141217
  16. TAXOL [Suspect]
     Active Substance: PACLITAXEL
     Indication: ANAL CANCER STAGE IV
     Dosage: DF
  17. TAXOL [Suspect]
     Active Substance: PACLITAXEL
     Dosage: 1 CYCLE
     Dates: start: 20141217
  18. XOPENEX HFA [Concomitant]
     Active Substance: LEVALBUTEROL TARTRATE
     Indication: WHEEZING
     Dosage: Q 4-6 H PRN WHEEZING
  19. DEXAMETHASONE. [Concomitant]
     Active Substance: DEXAMETHASONE
     Dosage: DAYS 2, 3, 4 AFTER CHEMOTHERAPY
     Route: 048
  20. LIDODERM [Concomitant]
     Active Substance: LIDOCAINE
     Dosage: AS DIRECTED
     Route: 061
  21. PROMETHAZINE HCL [Concomitant]
     Active Substance: PROMETHAZINE HYDROCHLORIDE
     Indication: NAUSEA
     Route: 048
  22. ANUSOL-HC [Concomitant]
     Dosage: PRN
     Route: 054
  23. MEDI 4736 [Suspect]
     Active Substance: DURVALUMAB
     Indication: ANAL CANCER STAGE IV
     Dosage: DF
     Dates: start: 20141015, end: 20141118
  24. SOMA [Concomitant]
     Active Substance: CARISOPRODOL
     Route: 048
  25. TRANSDERM SCOP [Concomitant]
     Active Substance: SCOPOLAMINE
     Dosage: 1.5MG/72HR
     Route: 061
  26. BENADRYL [Concomitant]
     Active Substance: DIPHENHYDRAMINE HYDROCHLORIDE
     Dosage: AS DIRECTED
     Route: 048
  27. TRIPLE MIX [Concomitant]
     Indication: OROPHARYNGEAL PAIN
     Dosage: 1 TEASPOONFUL(S) SWISH AND SPIT PRN, MAY SWALLOW UP TO 4 TIMES PER DAY FOR A SORE THROAT
     Route: 048
  28. TREMELIBUMAB [Suspect]
     Active Substance: TREMELIMUMAB
     Indication: ANAL CANCER STAGE IV
  29. SYNTHROID [Concomitant]
     Active Substance: LEVOTHYROXINE SODIUM
     Indication: HYPOTHYROIDISM
     Route: 048

REACTIONS (9)
  - Nausea [Recovered/Resolved]
  - Constipation [Not Recovered/Not Resolved]
  - Pain of skin [Not Recovered/Not Resolved]
  - Somnolence [Unknown]
  - Anxiety [Unknown]
  - Dizziness [Unknown]
  - Vertigo [Unknown]
  - Fatigue [Unknown]
  - Menorrhagia [Not Recovered/Not Resolved]
